FAERS Safety Report 6700260-8 (Version None)
Quarter: 2010Q2

REPORT INFORMATION
  Report Type: 
  Country: None (occurrence: None)
  Receive Date: 20100428
  Receipt Date: 20100416
  Transmission Date: 20101027
  Serious: Yes (Hospitalization)
  Sender: FDA-Public Use
  Company Number: DE-PFIZER INC-2008041737

PATIENT
  Age: 72 Year
  Sex: Male
  Weight: 64.1 kg

DRUGS (6)
  1. BLINDED *NO SUBJECT DRUG [Suspect]
     Indication: CARDIAC FAILURE
     Route: 048
     Dates: start: 20071213, end: 20080310
  2. BLINDED *PLACEBO [Suspect]
     Indication: CARDIAC FAILURE
     Route: 048
     Dates: start: 20071213, end: 20080310
  3. BLINDED EPLERENONE [Suspect]
     Indication: CARDIAC FAILURE
     Route: 048
     Dates: start: 20071213, end: 20080310
  4. ACETYLSALICYLIC ACID [Concomitant]
     Dates: start: 20040514
  5. RAMIPRIL [Concomitant]
     Dates: start: 20060615
  6. PRAVASTATIN SODIUM [Concomitant]
     Dates: start: 20040514

REACTIONS (4)
  - CHRONIC OBSTRUCTIVE PULMONARY DISEASE [None]
  - CONDITION AGGRAVATED [None]
  - ERYSIPELAS [None]
  - GASTRITIS EROSIVE [None]
